FAERS Safety Report 6348335-X (Version None)
Quarter: 2009Q3

REPORT INFORMATION
  Report Type: 
  Country: None (occurrence: None)
  Receive Date: 20090908
  Receipt Date: 20090827
  Transmission Date: 20100115
  Serious: Yes (Hospitalization, Disabling)
  Sender: FDA-Public Use
  Company Number: 2008AL004854

PATIENT
  Age: 59 Year
  Sex: Female

DRUGS (38)
  1. METOCLOPRAMIDE [Suspect]
     Indication: GASTROOESOPHAGEAL REFLUX DISEASE
     Dosage: 10 MG; QID
     Dates: start: 20000301
  2. BENICAR HCT [Concomitant]
  3. GUANFACINE HYDROCHLORIDE [Concomitant]
  4. VERAPAMIL [Concomitant]
  5. TOBRADEX [Concomitant]
  6. NORTRIPTYLINE HCL [Concomitant]
  7. SIMVASTATIN [Concomitant]
  8. OMEPRAZOLE [Concomitant]
  9. CLONIDINE [Concomitant]
  10. FLUOXETINE [Concomitant]
  11. CLINDAMYCIN [Concomitant]
  12. TOPROL-XL [Concomitant]
  13. NORVASC [Concomitant]
  14. NEXIUM [Concomitant]
  15. ESTRACE [Concomitant]
  16. DIHISTINE-DH [Concomitant]
  17. CEPHALEXIN [Concomitant]
  18. METRONIDAZOL [Concomitant]
  19. SUTALBITA/APAP [Concomitant]
  20. PRILOSEC [Concomitant]
  21. OXAPROZIN [Concomitant]
  22. MAXALT [Concomitant]
  23. PREDNISONE [Concomitant]
  24. ACYCLOVIR [Concomitant]
  25. TRIHEXYPHEN [Concomitant]
  26. METHOCARBAM [Concomitant]
  27. PERIOSTAT [Concomitant]
  28. ZOCOR [Concomitant]
  29. PROMETHAZINE [Concomitant]
  30. GEMFIBROZIL [Concomitant]
  31. AMOXICILLIN [Concomitant]
  32. LOTREL [Concomitant]
  33. HISTINEX HC [Concomitant]
  34. PREVACID [Concomitant]
  35. PSEUDO-CHLOR [Concomitant]
  36. SEREVENT [Concomitant]
  37. ALBUTEROL [Concomitant]
  38. PAXIL [Concomitant]

REACTIONS (16)
  - DECREASED ACTIVITY [None]
  - DEFORMITY [None]
  - DIABETIC KETOACIDOSIS [None]
  - DRY MOUTH [None]
  - DYSKINESIA [None]
  - DYSTONIA [None]
  - GAIT DISTURBANCE [None]
  - HYPERLIPIDAEMIA [None]
  - HYPERTENSION [None]
  - HYPOPHONESIS [None]
  - MENTAL DISORDER [None]
  - MULTIPLE INJURIES [None]
  - ORAL PAIN [None]
  - PAIN [None]
  - RESPIRATORY RATE DECREASED [None]
  - TORTICOLLIS [None]
